FAERS Safety Report 21206844 (Version 11)
Quarter: 2023Q2

REPORT INFORMATION
  Report Type: Report from Study
  Country: CN (occurrence: CN)
  Receive Date: 20220812
  Receipt Date: 20230411
  Transmission Date: 20230721
  Serious: Yes (Death, Life-Threatening, Hospitalization, Other)
  Sender: FDA-Public Use
  Company Number: CN-TAKEDA-2021TUS082527

PATIENT
  Age: 63 Year
  Sex: Male
  Weight: 76 kg

DRUGS (62)
  1. IXAZOMIB [Suspect]
     Active Substance: IXAZOMIB
     Indication: Plasma cell myeloma
     Dosage: 3 MILLIGRAM, 1/WEEK
     Route: 048
     Dates: start: 20210624
  2. GLUTATHIONE [Concomitant]
     Active Substance: GLUTATHIONE
     Indication: Hepatobiliary disorder prophylaxis
     Dosage: 1.8 GRAM, QD
     Route: 042
     Dates: start: 20210810, end: 20210813
  3. GLUTATHIONE [Concomitant]
     Active Substance: GLUTATHIONE
     Dosage: 0.6 MILLIGRAM
     Route: 042
     Dates: start: 20210810, end: 20210810
  4. ADENOSINE CYCLIC PHOSPHATE MEGLUMINE [Concomitant]
     Active Substance: ADENOSINE CYCLIC PHOSPHATE MEGLUMINE
     Indication: Cardiovascular event prophylaxis
     Dosage: 180 MILLIGRAM, QD
     Route: 042
     Dates: start: 20210810, end: 20210813
  5. ESOMEPRAZOLE SODIUM [Concomitant]
     Active Substance: ESOMEPRAZOLE SODIUM
     Indication: Prophylaxis
     Dosage: 40 MILLIGRAM, QD
     Route: 042
     Dates: start: 20210810, end: 20210813
  6. AMMONIUM GLYCYRRHIZATE\CYSTEINE [Concomitant]
     Active Substance: AMMONIUM GLYCYRRHIZATE\CYSTEINE
     Indication: Prophylaxis
     Dosage: 250 MILLILITER, QD
     Route: 042
     Dates: start: 20210810, end: 20210813
  7. BICYCLOL [Concomitant]
     Active Substance: BICYCLOL
     Indication: Prophylaxis
     Dosage: 50 MILLIGRAM, TID
     Route: 048
     Dates: start: 20210810, end: 20210813
  8. BENZBROMARONE [Concomitant]
     Active Substance: BENZBROMARONE
     Indication: Blood uric acid increased
     Dosage: 50 MILLIGRAM, QD
     Route: 048
     Dates: start: 20210810, end: 20210813
  9. CLOSTRIDIUM BUTYRICUM SPORES STRAIN M-55 [Concomitant]
     Active Substance: CLOSTRIDIUM BUTYRICUM SPORES STRAIN M-55
     Indication: Antibiotic prophylaxis
     Dosage: 40 MILLIGRAM, TID
     Dates: start: 20210810, end: 20210813
  10. DARATUMUMAB [Concomitant]
     Active Substance: DARATUMUMAB
     Indication: Plasma cell myeloma
     Dosage: 400 MILLIGRAM
     Route: 042
     Dates: start: 20210810, end: 20210810
  11. DEXAMETHASONE SODIUM PHOSPHATE [Concomitant]
     Active Substance: DEXAMETHASONE SODIUM PHOSPHATE
     Indication: Plasma cell myeloma
     Dosage: 20 MILLIGRAM
     Route: 042
     Dates: start: 20210810, end: 20210810
  12. DEXAMETHASONE SODIUM PHOSPHATE [Concomitant]
     Active Substance: DEXAMETHASONE SODIUM PHOSPHATE
     Dosage: 20 MILLIGRAM
     Route: 042
     Dates: start: 20210811, end: 20210811
  13. DEXAMETHASONE SODIUM PHOSPHATE [Concomitant]
     Active Substance: DEXAMETHASONE SODIUM PHOSPHATE
     Dosage: 2.5 MILLIGRAM, QD
     Route: 042
     Dates: start: 20220322, end: 20220406
  14. DEXAMETHASONE SODIUM PHOSPHATE [Concomitant]
     Active Substance: DEXAMETHASONE SODIUM PHOSPHATE
     Dosage: 5 MILLIGRAM
     Route: 042
     Dates: start: 20220404, end: 20220404
  15. DEXAMETHASONE SODIUM PHOSPHATE [Concomitant]
     Active Substance: DEXAMETHASONE SODIUM PHOSPHATE
     Dosage: 17.5 MILLIGRAM
     Route: 042
     Dates: start: 20220322, end: 20220322
  16. DEXAMETHASONE SODIUM PHOSPHATE [Concomitant]
     Active Substance: DEXAMETHASONE SODIUM PHOSPHATE
     Dosage: 2.5 MILLIGRAM
     Route: 042
     Dates: start: 20220322, end: 20220322
  17. ONDANSETRON HYDROCHLORIDE [Concomitant]
     Active Substance: ONDANSETRON HYDROCHLORIDE
     Indication: Prophylaxis of nausea and vomiting
     Dosage: 8 MILLIGRAM
     Route: 042
     Dates: start: 20210810, end: 20210810
  18. ONDANSETRON HYDROCHLORIDE [Concomitant]
     Active Substance: ONDANSETRON HYDROCHLORIDE
     Dosage: 8 MILLIGRAM
     Route: 042
     Dates: start: 20210811, end: 20210811
  19. SODIUM BICARBONATE [Concomitant]
     Active Substance: SODIUM BICARBONATE
     Indication: Metabolic acidosis
     Dosage: 125 MILLILITER
     Route: 042
     Dates: start: 20210810, end: 20210810
  20. SODIUM BICARBONATE [Concomitant]
     Active Substance: SODIUM BICARBONATE
     Dosage: 125 MILLILITER
     Route: 042
     Dates: start: 20210811, end: 20210811
  21. FUROSEMIDE [Concomitant]
     Active Substance: FUROSEMIDE
     Indication: Polyuria
     Dosage: 20 MILLIGRAM
     Route: 042
     Dates: start: 20210810, end: 20210810
  22. FUROSEMIDE [Concomitant]
     Active Substance: FUROSEMIDE
     Dosage: 20 MILLIGRAM
     Route: 042
     Dates: start: 20210811, end: 20210811
  23. PROMETHAZINE HYDROCHLORIDE [Concomitant]
     Active Substance: PROMETHAZINE HYDROCHLORIDE
     Indication: Antiallergic therapy
     Dosage: 25 MILLILITER
     Route: 030
     Dates: start: 20210810, end: 20210810
  24. PROMETHAZINE HYDROCHLORIDE [Concomitant]
     Active Substance: PROMETHAZINE HYDROCHLORIDE
     Dosage: 25 MILLILITER
     Route: 030
     Dates: start: 20210811, end: 20210811
  25. LORATADINE [Concomitant]
     Active Substance: LORATADINE
     Indication: Antiallergic therapy
     Dosage: 10 MILLIGRAM
     Route: 048
     Dates: start: 20210810, end: 20210810
  26. LORATADINE [Concomitant]
     Active Substance: LORATADINE
     Dosage: 10 MILLIGRAM
     Route: 048
     Dates: start: 20210811, end: 20210811
  27. COMPOUND PARACETAMOL [Concomitant]
     Indication: Antiallergic therapy
     Dosage: 900 MILLIGRAM
     Route: 048
     Dates: start: 20210810, end: 20210811
  28. LEUCOGEN [Concomitant]
     Active Substance: LEUCOGEN
     Indication: White blood cell count increased
     Dosage: 20 MILLIGRAM, TID
     Route: 048
     Dates: start: 20210813, end: 20210825
  29. OMEPRAZOLE [Concomitant]
     Active Substance: OMEPRAZOLE
     Indication: Prophylaxis
     Dosage: 20 MILLIGRAM, QD
     Route: 048
     Dates: start: 20210813, end: 20210825
  30. OMEPRAZOLE [Concomitant]
     Active Substance: OMEPRAZOLE
     Indication: Gastrointestinal disorder prophylaxis
     Dosage: 40 MILLIGRAM, QD
     Route: 042
     Dates: start: 20220327, end: 20220406
  31. DOXOFYLLINE [Concomitant]
     Active Substance: DOXOFYLLINE
     Indication: Asthma prophylaxis
     Dosage: 0.1 GRAM, QD
     Route: 042
     Dates: start: 20220403, end: 20220406
  32. MEROPENEM [Concomitant]
     Active Substance: MEROPENEM
     Indication: Infection prophylaxis
     Dosage: 0.5 GRAM, QD
     Route: 042
     Dates: start: 20220326, end: 20220326
  33. VANCOMYCIN HYDROCHLORIDE [Concomitant]
     Active Substance: VANCOMYCIN HYDROCHLORIDE
     Indication: Infection prophylaxis
     Dosage: 0.5 GRAM, QD
     Route: 042
     Dates: start: 20220327, end: 20220402
  34. FLUCONAZOLE [Concomitant]
     Active Substance: FLUCONAZOLE
     Indication: Antifungal prophylaxis
     Dosage: 0.2 GRAM, QD
     Route: 042
     Dates: start: 20220327, end: 20220328
  35. Haemocoagulase Agkistrodon [Concomitant]
     Indication: Haemostasis
     Dosage: UNK UNK, BID
     Route: 042
     Dates: start: 20220327, end: 20220406
  36. Haemocoagulase Agkistrodon [Concomitant]
     Dosage: UNK UNK, BID
     Route: 042
     Dates: start: 20220328, end: 20220406
  37. AMINOCAPROIC ACID AND SODIUM CHLORIDE [Concomitant]
     Indication: Haemostasis
     Dosage: 100 MILLILITER, QD
     Route: 042
     Dates: start: 20220328, end: 20220406
  38. VITAMIN K1 [Concomitant]
     Active Substance: PHYTONADIONE
     Indication: Haemostasis
     Dosage: 20 MILLIGRAM, QD
     Route: 042
     Dates: start: 20220328, end: 20220406
  39. CASPOFUNGIN [Concomitant]
     Active Substance: CASPOFUNGIN
     Indication: Antifungal prophylaxis
     Dosage: 50 MILLIGRAM, QD
     Route: 042
     Dates: start: 20220328, end: 20220406
  40. TOLTERODINE TARTRATE [Concomitant]
     Active Substance: TOLTERODINE TARTRATE
     Indication: Bladder dilatation
     Dosage: 2 MILLIGRAM, BID
     Route: 048
     Dates: start: 20220401, end: 20220406
  41. ERYTHROPOIETIN [Concomitant]
     Active Substance: ERYTHROPOIETIN
     Indication: Erythropoietin deficiency anaemia
     Dosage: UNK UNK, QD
     Route: 058
     Dates: start: 20220402, end: 20220406
  42. VITAMIN B6 [Concomitant]
     Active Substance: PYRIDOXINE HYDROCHLORIDE
     Indication: Vitamin supplementation
     Dosage: 0.2 GRAM, QD
     Route: 042
     Dates: start: 20220403, end: 20220406
  43. HEPARIN SODIUM [Concomitant]
     Active Substance: HEPARIN SODIUM
     Indication: Prophylaxis
     Dosage: UNK UNK, QD
     Route: 042
     Dates: start: 20220322, end: 20220406
  44. AMINO ACIDS, SOURCE UNSPECIFIED [Concomitant]
     Active Substance: AMINO ACIDS, SOURCE UNSPECIFIED
     Indication: Nutritional supplementation
     Dosage: 500 MILLILITER, QD
     Route: 042
     Dates: start: 20220325, end: 20220406
  45. POTASSIUM CHLORIDE [Concomitant]
     Active Substance: POTASSIUM CHLORIDE
     Indication: Mineral supplementation
     Dosage: 1 GRAM, QD
     Route: 042
     Dates: start: 20220325, end: 20220427
  46. POTASSIUM CHLORIDE [Concomitant]
     Active Substance: POTASSIUM CHLORIDE
     Dosage: 1 GRAM
     Route: 042
     Dates: start: 20220403, end: 20220403
  47. SULFAMETHOXAZOLE [Concomitant]
     Active Substance: SULFAMETHOXAZOLE
     Indication: Antibiotic prophylaxis
     Dosage: UNK UNK, BID
     Route: 048
     Dates: start: 20220325, end: 20220406
  48. TRANEXAMIC ACID [Concomitant]
     Active Substance: TRANEXAMIC ACID
     Indication: Anticoagulation drug level increased
     Dosage: 1 GRAM, QD
     Route: 042
     Dates: start: 20220322, end: 20220325
  49. GLUTATHIONE [Concomitant]
     Active Substance: GLUTATHIONE
     Indication: Prophylaxis
     Dosage: 1.8 GRAM, QD
     Route: 042
     Dates: start: 20220322, end: 20220325
  50. ILAPRAZOLE [Concomitant]
     Active Substance: ILAPRAZOLE
     Indication: Prophylaxis
     Dosage: 10 MILLIGRAM, QD
     Route: 042
     Dates: start: 20220322, end: 20220325
  51. METHYLPREDNISOLONE SODIUM SUCCINATE [Concomitant]
     Active Substance: METHYLPREDNISOLONE SODIUM SUCCINATE
     Indication: Prophylaxis
     Dosage: 40 MILLIGRAM
     Route: 042
     Dates: start: 20220404, end: 20220404
  52. TORSEMIDE [Concomitant]
     Active Substance: TORSEMIDE
     Indication: Polyuria
     Dosage: 10 MILLIGRAM
     Route: 042
     Dates: start: 20220403, end: 20220403
  53. THROMBOPOIETIN [Concomitant]
     Active Substance: THROMBOPOIETIN
     Indication: Platelet count increased
     Dosage: UNK
     Route: 042
     Dates: start: 20220404, end: 20220404
  54. MORPHINE HYDROCHLORIDE [Concomitant]
     Active Substance: MORPHINE HYDROCHLORIDE
     Indication: Analgesic therapy
     Dosage: 10 MILLIGRAM, QD
     Route: 058
     Dates: start: 20220330, end: 20220330
  55. DIAZEPAM [Concomitant]
     Active Substance: DIAZEPAM
     Indication: Sedation
     Dosage: 10 MILLIGRAM
     Route: 030
     Dates: start: 20220330, end: 20220330
  56. ALANYL GLUTAMINE [Concomitant]
     Active Substance: ALANYL GLUTAMINE
     Indication: Nutritional supplementation
     Dosage: 10 GRAM
     Route: 042
     Dates: start: 20220324, end: 20220324
  57. CALCIUM GLUCONATE [Concomitant]
     Active Substance: CALCIUM GLUCONATE
     Indication: Mineral supplementation
     Dosage: 1 GRAM
     Route: 042
     Dates: start: 20220323, end: 20220323
  58. BETAMETHASONE SODIUM PHOSPHATE [Concomitant]
     Active Substance: BETAMETHASONE SODIUM PHOSPHATE
     Indication: Antiallergic therapy
     Dosage: 4 MILLIGRAM
     Route: 042
     Dates: start: 20220324, end: 20220324
  59. LEVOCARNITINE [Concomitant]
     Active Substance: LEVOCARNITINE
     Indication: Nutritional supplementation
     Dosage: 2 GRAM
     Route: 042
     Dates: start: 20220324, end: 20220324
  60. INSULIN HUMAN [Concomitant]
     Active Substance: INSULIN HUMAN
     Indication: Blood glucose decreased
     Dosage: UNK
     Route: 042
     Dates: start: 20220324, end: 20220324
  61. ALBUMIN HUMAN [Concomitant]
     Active Substance: ALBUMIN HUMAN
     Indication: Blood albumin increased
     Dosage: 10 MILLIGRAM
     Route: 042
     Dates: start: 20220322, end: 20220322
  62. PAMIDRONATE DISODIUM [Concomitant]
     Active Substance: PAMIDRONATE DISODIUM
     Indication: Prophylaxis
     Dosage: 60 MILLIGRAM
     Route: 042
     Dates: start: 20220322, end: 20220322

REACTIONS (5)
  - Plasma cell myeloma [Fatal]
  - Septic shock [Not Recovered/Not Resolved]
  - Pyrexia [Recovering/Resolving]
  - Productive cough [Recovered/Resolved]
  - Off label use [Recovered/Resolved]

NARRATIVE: CASE EVENT DATE: 20210628
